FAERS Safety Report 24868882 (Version 3)
Quarter: 2025Q3

REPORT INFORMATION
  Report Type: Report from Study
  Country: US (occurrence: US)
  Receive Date: 20250121
  Receipt Date: 20250909
  Transmission Date: 20251021
  Serious: Yes (Other)
  Sender: ABBVIE
  Company Number: US-ABBVIE-6089039

PATIENT
  Sex: Female

DRUGS (3)
  1. RINVOQ [Suspect]
     Active Substance: UPADACITINIB
     Indication: Psoriatic arthropathy
     Dosage: STRENGTH: 15 MG
     Route: 048
     Dates: start: 20241006, end: 20250112
  2. RINVOQ [Suspect]
     Active Substance: UPADACITINIB
     Indication: Psoriatic arthropathy
     Dosage: STRENGTH-15MG
     Route: 048
     Dates: start: 202507
  3. PREDNISONE [Concomitant]
     Active Substance: PREDNISONE
     Indication: Product used for unknown indication

REACTIONS (11)
  - Intestinal obstruction [Unknown]
  - Skin disorder [Unknown]
  - Abdominal discomfort [Unknown]
  - Pyrexia [Recovered/Resolved]
  - White blood cell count increased [Unknown]
  - Red blood cell count decreased [Unknown]
  - Platelet count increased [Unknown]
  - Arthralgia [Recovering/Resolving]
  - Blood disorder [Recovering/Resolving]
  - Illness [Unknown]
  - Pleurisy [Recovered/Resolved]
